FAERS Safety Report 5347909-2 (Version None)
Quarter: 2007Q2

REPORT INFORMATION
  Report Type: 
  Country: None (occurrence: None)
  Receive Date: 20070606
  Receipt Date: 20070604
  Transmission Date: 20071010
  Serious: Yes (Life-Threatening, Hospitalization, Other)
  Sender: FDA-Public Use
  Company Number: A0651014A

PATIENT
  Age: 62 Year
  Sex: Female
  Weight: 71 kg

DRUGS (10)
  1. TYKERB [Suspect]
     Indication: BREAST CANCER
     Dosage: 1250MG PER DAY
     Route: 048
     Dates: start: 20070401
  2. XELODA [Concomitant]
     Indication: BREAST CANCER
     Dosage: 1000MG TWICE PER DAY
     Route: 048
     Dates: start: 20070401
  3. GLIPIZIDE [Concomitant]
     Indication: HYPERTENSION
     Dosage: 5MG PER DAY
     Route: 048
  4. POTASSIUM ACETATE [Concomitant]
     Indication: HYPOKALAEMIA
     Dosage: 20MEQ PER DAY
     Route: 048
  5. HYDROCHLOROTHIAZIDE [Concomitant]
     Indication: HYPERTENSION
     Dosage: 12.5MG PER DAY
     Route: 048
  6. LOVENOX [Concomitant]
     Indication: THROMBOSIS PROPHYLAXIS
     Dosage: 40MG PER DAY
     Route: 058
  7. INSULIN NOVOLIN [Concomitant]
     Indication: DIABETES MELLITUS
     Route: 058
  8. DARVON [Concomitant]
     Indication: PAIN
     Dosage: 65MG AS REQUIRED
     Route: 048
  9. ALTACE [Concomitant]
     Indication: HYPERTENSION
     Dosage: 10MG PER DAY
     Route: 048
  10. LANTUS [Concomitant]
     Indication: DIABETES MELLITUS
     Route: 058

REACTIONS (5)
  - DIARRHOEA [None]
  - HYPOTENSION [None]
  - HYPOVOLAEMIA [None]
  - LUNG INFILTRATION [None]
  - RENAL FAILURE ACUTE [None]
